FAERS Safety Report 8291212-8 (Version None)
Quarter: 2012Q2

REPORT INFORMATION
  Report Type: 
  Country: None (occurrence: None)
  Receive Date: 20120417
  Receipt Date: 20120409
  Transmission Date: 20120825
  Serious: Yes (Other)
  Sender: FDA-Public Use
  Company Number: US-BAYER-2011-070577

PATIENT
  Age: 34 Year
  Sex: Female
  Weight: 94.331 kg

DRUGS (10)
  1. YAZ [Suspect]
     Indication: CONTRACEPTION
     Dosage: UNK
     Dates: start: 20070910, end: 20080813
  2. YAZ [Suspect]
  3. VENTOLIN DS [Concomitant]
     Indication: ASTHMA
     Dosage: UNK
     Route: 045
     Dates: start: 20070801, end: 20080701
  4. IBUPROFEN (ADVIL) [Concomitant]
  5. YAZ [Suspect]
     Indication: ACNE
  6. ALBUTEROL [Concomitant]
  7. YAZ [Suspect]
     Indication: PREMENSTRUAL SYNDROME
  8. NAPROSYN [Concomitant]
  9. TYLENOL (CAPLET) [Concomitant]
  10. ANTIHISTAMINES [Concomitant]

REACTIONS (8)
  - PAIN [None]
  - LOWER EXTREMITY MASS [None]
  - SKIN DISCOLOURATION [None]
  - THROMBOPHLEBITIS SUPERFICIAL [None]
  - ANXIETY [None]
  - PAIN IN EXTREMITY [None]
  - INJURY [None]
  - EMOTIONAL DISTRESS [None]
